FAERS Safety Report 5028599-5 (Version None)
Quarter: 2006Q2

REPORT INFORMATION
  Report Type: 
  Country: None (occurrence: None)
  Receive Date: 20060615
  Receipt Date: 20060615
  Transmission Date: 20061013
  Serious: Yes (Hospitalization)
  Sender: FDA-Public Use
  Company Number: None

PATIENT
  Age: 64 Year
  Sex: Male
  Weight: 54 kg

DRUGS (15)
  1. PERCOCET [Suspect]
     Indication: PAIN
     Dosage: ONE PO Q4HRS PRN
     Route: 048
  2. ENALAPRIL [Suspect]
     Indication: HYPERTENSION
     Dosage: 10 MG PO DAILY    DURATION: CHRONIC
  3. TYLENOL (CAPLET) [Concomitant]
  4. DULCOLAX [Concomitant]
  5. CLONIDINE [Concomitant]
  6. AGGRENOX [Concomitant]
  7. VIT B12 [Concomitant]
  8. FOLIC ACID [Concomitant]
  9. FRAGMIN [Concomitant]
  10. GABAPENTIN [Concomitant]
  11. VITAMIN [Concomitant]
  12. PRILOSEC [Concomitant]
  13. PROCRIT [Concomitant]
  14. ZOCOR [Concomitant]
  15. VIT B [Concomitant]

REACTIONS (4)
  - ARTHRALGIA [None]
  - FALL [None]
  - HYPOTENSION [None]
  - MENTAL STATUS CHANGES [None]
